FAERS Safety Report 16675492 (Version 2)
Quarter: 2019Q4

REPORT INFORMATION
  Report Type: Report from Study
  Country: US (occurrence: US)
  Receive Date: 20190806
  Receipt Date: 20191119
  Transmission Date: 20200122
  Serious: Yes (Hospitalization, Other)
  Sender: FDA-Public Use
  Company Number: PHEH2019US032375

PATIENT
  Sex: Female

DRUGS (1)
  1. ENTRESTO [Suspect]
     Active Substance: SACUBITRIL\VALSARTAN
     Indication: PRODUCT USED FOR UNKNOWN INDICATION
     Dosage: 1 DF (49 MG SAVUBITRIL/ 51 MG VALSARTAN)
     Route: 048

REACTIONS (5)
  - Paralysis [Unknown]
  - Arthropod bite [Unknown]
  - Paraplegia [Unknown]
  - Mobility decreased [Unknown]
  - Spinal cord infection [Unknown]
